FAERS Safety Report 9485757 (Version 2)
Quarter: 2013Q3

REPORT INFORMATION
  Report Type: Report from Study
  Country: AU (occurrence: AU)
  Receive Date: 20130829
  Receipt Date: 20130904
  Transmission Date: 20140515
  Serious: Yes (Hospitalization)
  Sender: FDA-Public Use
  Company Number: AU-CELGENEUS-008-21660-13082213

PATIENT
  Age: 63 Year
  Sex: Female

DRUGS (4)
  1. ABRAXANE [Suspect]
     Indication: PANCREATIC CARCINOMA
     Route: 041
  2. GEMCITABINE [Suspect]
     Indication: PANCREATIC CARCINOMA
     Route: 065
  3. ONDANSETRON [Concomitant]
     Indication: PRODUCT USED FOR UNKNOWN INDICATION
     Route: 065
  4. HALOPERIDOL [Concomitant]
     Indication: PRODUCT USED FOR UNKNOWN INDICATION
     Route: 065

REACTIONS (1)
  - Nausea [Recovered/Resolved]
